FAERS Safety Report 7395524 (Version 18)
Quarter: 2012Q4

REPORT INFORMATION
  Report Type: 
  Country: CA (occurrence: CA)
  Receive Date: 20100521
  Receipt Date: 20121029
  Transmission Date: 20130627
  Serious: Yes (Hospitalization, Other)
  Sender: FDA-Public Use
  Company Number: PHHY2009CA45320

PATIENT
  Sex: Female

DRUGS (1)
  1. SANDOSTATIN LAR [Suspect]
     Indication: CARCINOID TUMOUR OF THE GASTROINTESTINAL TRACT
     Dosage: 50 mg, Every 4 weeks
     Route: 030
     Dates: start: 20081210

REACTIONS (30)
  - Infection [Unknown]
  - Respiratory disorder [Unknown]
  - Tremor [Unknown]
  - Palpitations [Unknown]
  - Neck pain [Unknown]
  - Headache [Unknown]
  - Musculoskeletal pain [Unknown]
  - Dyspnoea [Unknown]
  - Malignant neoplasm progression [Unknown]
  - Lung neoplasm malignant [Unknown]
  - Cholelithiasis [Unknown]
  - Abdominal discomfort [Unknown]
  - Fatigue [Unknown]
  - Heart rate increased [Unknown]
  - Abdominal pain upper [Unknown]
  - Flushing [Unknown]
  - Hyperhidrosis [Unknown]
  - Myalgia [Unknown]
  - Sensation of pressure [Unknown]
  - Pain [Unknown]
  - Malaise [Unknown]
  - Musculoskeletal stiffness [Unknown]
  - Wheezing [Unknown]
  - Injection site erythema [Unknown]
  - Asthenia [Unknown]
  - Urticaria [Unknown]
  - Dizziness [Unknown]
  - Nausea [Unknown]
  - Abdominal distension [Unknown]
  - Injection site pain [Unknown]
